FAERS Safety Report 5300228-2 (Version None)
Quarter: 2007Q2

REPORT INFORMATION
  Report Type: 
  Country: None (occurrence: None)
  Receive Date: 20070411
  Receipt Date: 20070330
  Transmission Date: 20071010
  Serious: Yes (Hospitalization)
  Sender: FDA-Public Use
  Company Number: 2007SP003606

PATIENT
  Age: 49 Year
  Sex: Male
  Weight: 88 kg

DRUGS (10)
  1. TEMOZOLOMIDE (S-P) [Suspect]
     Indication: GLIOBLASTOMA MULTIFORME
     Dosage: 155 MG; PO
     Route: 048
     Dates: start: 20061226, end: 20070206
  2. DECADRON [Suspect]
     Indication: GLIOBLASTOMA MULTIFORME
  3. CRESTOR /01588601/ (CON.) [Concomitant]
  4. DILANTIN (CON.) [Concomitant]
  5. DIOVAN /01319601/ (CON.) [Concomitant]
  6. K-DUR (CON.) [Concomitant]
  7. LASIX /00032601/ (CON.) [Concomitant]
  8. METFORMIN /00082702/ (CON.) [Concomitant]
  9. PEPCID /000706001/ (CON.) [Concomitant]
  10. ZETIA (CON.) [Concomitant]

REACTIONS (10)
  - BLOOD GLUCOSE FLUCTUATION [None]
  - CONVULSION [None]
  - HEADACHE [None]
  - LOSS OF CONSCIOUSNESS [None]
  - NAUSEA [None]
  - OEDEMA [None]
  - PULMONARY EMBOLISM [None]
  - SEDATION [None]
  - SYNCOPE [None]
  - VOMITING [None]
